FAERS Safety Report 4747557-9 (Version None)
Quarter: 2005Q3

REPORT INFORMATION
  Report Type: 
  Country: None (occurrence: None)
  Receive Date: 20050818
  Receipt Date: 20040812
  Transmission Date: 20060218
  Serious: No
  Sender: FDA-Public Use
  Company Number: US-BRISTOL-MYERS SQUIBB COMPANY-12669370

PATIENT
  Age: 77 Year
  Sex: Male
  Weight: 77 kg

DRUGS (4)
  1. TEQUIN [Suspect]
     Indication: BACTERIAL INFECTION
     Route: 048
     Dates: start: 20040805, end: 20040811
  2. DIOVAN [Concomitant]
  3. MICROZIDE [Concomitant]
  4. PEPCID [Concomitant]
     Dates: start: 20040401

REACTIONS (4)
  - HYPERGLYCAEMIA [None]
  - HYPERHIDROSIS [None]
  - JAUNDICE [None]
  - JOINT SWELLING [None]
